FAERS Safety Report 25299834 (Version 1)
Quarter: 2025Q2

REPORT INFORMATION
  Report Type: Spontaneous
  Country: GB (occurrence: GB)
  Receive Date: 20250512
  Receipt Date: 20250512
  Transmission Date: 20250717
  Serious: Yes (Other)
  Sender: TEVA
  Company Number: GB-MHRA-TPP6267319C2258175YC1746693712441

PATIENT
  Age: 85 Year
  Sex: Female
  Weight: 55 kg

DRUGS (3)
  1. ONDANSETRON [Suspect]
     Active Substance: ONDANSETRON
     Indication: Ill-defined disorder
     Route: 065
     Dates: start: 20250504
  2. NYSTATIN [Concomitant]
     Active Substance: NYSTATIN
     Indication: Ill-defined disorder
     Dosage: 1ML 4 TIMES A DAY FOR 7 DAYS
     Dates: start: 20250504
  3. OTOMIZE [Concomitant]
     Indication: Ill-defined disorder
     Dosage: 1 SPRAY 3 TIMES PER DAY INTO AFFECTED EAR
     Dates: start: 20250418, end: 20250423

REACTIONS (2)
  - Delirium [Unknown]
  - Hallucination [Unknown]

NARRATIVE: CASE EVENT DATE: 20250508
